FAERS Safety Report 18278990 (Version 5)
Quarter: 2022Q4

REPORT INFORMATION
  Report Type: Spontaneous
  Country: CA (occurrence: CA)
  Receive Date: 20200917
  Receipt Date: 20221227
  Transmission Date: 20230112
  Serious: Yes (Hospitalization, Other)
  Sender: FDA-Public Use
  Company Number: CA-SAMSUNG BIOEPIS-SB-2020-28520

PATIENT
  Age: 76 Year
  Sex: Male
  Weight: 111 kg

DRUGS (2)
  1. INFLIXIMAB [Suspect]
     Active Substance: INFLIXIMAB
     Indication: Psoriatic arthropathy
     Route: 042
  2. ACETAMINOPHEN [Concomitant]
     Active Substance: ACETAMINOPHEN
     Indication: Product used for unknown indication
     Route: 065

REACTIONS (7)
  - Pulmonary embolism [Recovered/Resolved]
  - Carpal tunnel syndrome [Recovered/Resolved]
  - Aortic aneurysm [Recovered/Resolved]
  - Musculoskeletal stiffness [Recovered/Resolved]
  - Blood pressure fluctuation [Recovered/Resolved]
  - Large intestine polyp [Recovered/Resolved]
  - Off label use [Recovered/Resolved]
